FAERS Safety Report 20175461 (Version 1)
Quarter: 2021Q4

REPORT INFORMATION
  Report Type: Spontaneous
  Country: CN (occurrence: CN)
  Receive Date: 20211213
  Receipt Date: 20211213
  Transmission Date: 20220303
  Serious: Yes (Hospitalization)
  Sender: FDA-Public Use
  Company Number: CN-BAXTER-2021BAX039098

PATIENT
  Age: 43 Year
  Sex: Female
  Weight: 48 kg

DRUGS (21)
  1. CYCLOPHOSPHAMIDE [Suspect]
     Active Substance: CYCLOPHOSPHAMIDE
     Indication: Neoplasm malignant
     Dosage: CYCLOPHOSPHAMIDE (ENDOXAN) 900MG + 5% GS 500ML ?DAY 1
     Route: 041
     Dates: start: 20210922, end: 20210922
  2. CYCLOPHOSPHAMIDE [Suspect]
     Active Substance: CYCLOPHOSPHAMIDE
     Indication: Chemotherapy
     Dosage: DOSE REINTRODUCED
     Route: 041
  3. CYCLOPHOSPHAMIDE [Suspect]
     Active Substance: CYCLOPHOSPHAMIDE
     Indication: Postoperative care
  4. CYCLOPHOSPHAMIDE [Suspect]
     Active Substance: CYCLOPHOSPHAMIDE
     Indication: Invasive lobular breast carcinoma
  5. SODIUM CHLORIDE [Suspect]
     Active Substance: SODIUM CHLORIDE
     Indication: Medication dilution
     Dosage: EPIRUBICIN HYDROCHLORIDE (PHARMORUBICIN) 130MG + NS 100ML?D1
     Route: 041
     Dates: start: 20210922, end: 20210922
  6. SODIUM CHLORIDE [Suspect]
     Active Substance: SODIUM CHLORIDE
     Dosage: PACLITAXEL (ALBUMIN-BINDING TYPE) 210MG + NS 100ML ?D1
     Route: 041
     Dates: start: 20210922, end: 20210922
  7. DEXTROSE [Suspect]
     Active Substance: DEXTROSE
     Indication: Medication dilution
     Dosage: CYCLOPHOSPHAMIDE (ENDOXAN) 900MG + 5% GS 500ML ?D1
     Route: 041
     Dates: start: 20210922, end: 20210922
  8. PACLITAXEL [Suspect]
     Active Substance: PACLITAXEL
     Indication: Neoplasm malignant
     Dosage: PACLITAXEL (ALBUMIN-BINDING TYPE) 210MG + NS 100ML
     Route: 041
     Dates: start: 20210922, end: 20210922
  9. PACLITAXEL [Suspect]
     Active Substance: PACLITAXEL
     Indication: Chemotherapy
     Dosage: DOSE REINTRODUCED
     Route: 041
  10. PACLITAXEL [Suspect]
     Active Substance: PACLITAXEL
     Indication: Postoperative care
  11. PACLITAXEL [Suspect]
     Active Substance: PACLITAXEL
     Indication: Invasive lobular breast carcinoma
  12. EPIRUBICIN [Suspect]
     Active Substance: EPIRUBICIN
     Indication: Neoplasm malignant
     Dosage: EPIRUBICIN HYDROCHLORIDE (PHARMORUBICIN) 130MG + NS 100ML
     Route: 041
     Dates: start: 20210922, end: 20210922
  13. EPIRUBICIN [Suspect]
     Active Substance: EPIRUBICIN
     Indication: Chemotherapy
     Dosage: DOSE REINTRODUCED
     Route: 041
  14. EPIRUBICIN [Suspect]
     Active Substance: EPIRUBICIN
     Indication: Postoperative care
  15. EPIRUBICIN [Suspect]
     Active Substance: EPIRUBICIN
     Indication: Invasive lobular breast carcinoma
  16. OMEPRAZOLE SODIUM [Suspect]
     Active Substance: OMEPRAZOLE SODIUM
     Indication: Prophylaxis
     Route: 041
     Dates: start: 20210922, end: 20210922
  17. OMEPRAZOLE SODIUM [Suspect]
     Active Substance: OMEPRAZOLE SODIUM
     Dosage: DOSE REINTRODUCED
     Route: 041
  18. DEXAMETHASONE SODIUM PHOSPHATE [Suspect]
     Active Substance: DEXAMETHASONE SODIUM PHOSPHATE
     Indication: Antiinflammatory therapy
     Route: 042
     Dates: start: 20210922, end: 20210922
  19. DEXAMETHASONE SODIUM PHOSPHATE [Suspect]
     Active Substance: DEXAMETHASONE SODIUM PHOSPHATE
     Dosage: DOSE REINTRODUCED
     Route: 042
  20. PALONOSETRON HYDROCHLORIDE [Suspect]
     Active Substance: PALONOSETRON HYDROCHLORIDE
     Indication: Antiemetic supportive care
     Route: 041
     Dates: start: 20210922, end: 20210922
  21. PALONOSETRON HYDROCHLORIDE [Suspect]
     Active Substance: PALONOSETRON HYDROCHLORIDE
     Dosage: DOSE REINTRODUCED
     Route: 041

REACTIONS (1)
  - Myelosuppression [Unknown]

NARRATIVE: CASE EVENT DATE: 20210923
